FAERS Safety Report 8586086-1 (Version None)
Quarter: 2012Q3

REPORT INFORMATION
  Report Type: 
  Country: None (occurrence: None)
  Receive Date: 20120810
  Receipt Date: 20120802
  Transmission Date: 20120928
  Serious: Yes (Other)
  Sender: FDA-Public Use
  Company Number: ES-ELI_LILLY_AND_COMPANY-ES201208000945

PATIENT
  Sex: Female
  Weight: 74 kg

DRUGS (6)
  1. LORAZEPAM [Concomitant]
     Indication: DEPRESSION
     Dosage: 2 MG, QD
  2. MICARDIS [Concomitant]
     Indication: HYPERTENSION
     Dosage: 80 MG, QD
  3. ARCOXIA [Concomitant]
     Indication: PAIN
     Dosage: 60 MG, QD
  4. CLORAZEPATE DIPOTASSIUM [Concomitant]
     Indication: DEPRESSION
     Dosage: 15 MG, BID
  5. FORTEO [Suspect]
     Indication: OSTEOPOROSIS
     Dosage: 20 UG, QD
     Route: 058
     Dates: start: 20100916
  6. CALCIUM CARBONATE W/COLECALCIFEROL [Concomitant]
     Indication: OSTEOPOROSIS
     Dosage: UNK, BID

REACTIONS (5)
  - NECK INJURY [None]
  - ROAD TRAFFIC ACCIDENT [None]
  - LIMB INJURY [None]
  - JOINT INJURY [None]
  - GAIT DISTURBANCE [None]
